FAERS Safety Report 8929015 (Version 1)
Quarter: 2012Q4

REPORT INFORMATION
  Report Type: 
  Country: JP (occurrence: JP)
  Receive Date: 20121128
  Receipt Date: 20121128
  Transmission Date: 20130627
  Serious: No
  Sender: FDA-Public Use
  Company Number: JP-JNJFOC-20121111622

PATIENT
  Age: 60 Year
  Sex: Female

DRUGS (3)
  1. DUROTEP MT [Suspect]
     Indication: PAIN
     Route: 062
     Dates: start: 20121112
  2. DUROTEP MT [Suspect]
     Indication: PAIN
     Route: 062
     Dates: start: 20121101, end: 20121112
  3. OPALMON [Concomitant]
     Indication: LUMBAR SPINAL STENOSIS
     Route: 048

REACTIONS (5)
  - Nausea [Recovered/Resolved]
  - Dizziness [Recovered/Resolved]
  - Inappropriate schedule of drug administration [Unknown]
  - Somnolence [Recovered/Resolved]
  - Headache [Recovered/Resolved]
